FAERS Safety Report 24118969 (Version 2)
Quarter: 2024Q3

REPORT INFORMATION
  Report Type: Spontaneous
  Country: GB (occurrence: GB)
  Receive Date: 20240722
  Receipt Date: 20240724
  Transmission Date: 20241017
  Serious: Yes (Death, Other)
  Sender: ACCORD
  Company Number: None

PATIENT
  Age: 52 Year
  Sex: Male
  Weight: 88 kg

DRUGS (10)
  1. ARIPIPRAZOLE [Suspect]
     Active Substance: ARIPIPRAZOLE
     Indication: Product used for unknown indication
     Dosage: 5 MG, QD (5 MILLIGRAM, QD (OD))
  2. ATORVASTATIN [Suspect]
     Active Substance: ATORVASTATIN
     Indication: Product used for unknown indication
     Dosage: 40 MG, QD (40 MILLIGRAM, QD (OD))
  3. DULOXETINE [Suspect]
     Active Substance: DULOXETINE
     Indication: Product used for unknown indication
     Dosage: 60 MG, QD (60 MILLIGRAM, QD (OD))
  4. SITAGLIPTIN [Suspect]
     Active Substance: SITAGLIPTIN
     Indication: Product used for unknown indication
     Dosage: 50 MG, QD (50 MILLIGRAM, QD (OD))
  5. METFORMIN [Suspect]
     Active Substance: METFORMIN HYDROCHLORIDE
     Indication: Product used for unknown indication
     Dosage: 1000 MG, QD (1000 MILLIGRAM, QD (OD))
  6. LANSOPRAZOLE [Suspect]
     Active Substance: LANSOPRAZOLE
     Indication: Product used for unknown indication
     Dosage: 15 MG, QD (15 MILLIGRAM, QD (OD))
  7. FLUTICASONE FUROATE\VILANTEROL TRIFENATATE [Suspect]
     Active Substance: FLUTICASONE FUROATE\VILANTEROL TRIFENATATE
     Indication: Product used for unknown indication
     Dosage: UNK
  8. CLONAZEPAM [Suspect]
     Active Substance: CLONAZEPAM
     Indication: Product used for unknown indication
     Dosage: 1000 UG, QD (1000 MICROGRAM, QD (OD))
  9. CLOZARIL [Suspect]
     Active Substance: CLOZAPINE
     Indication: Schizophrenia
     Dosage: 450 MG, QD (450 MILLIGRAM, QD (150 MILLIGRAM AND 300 MILLIGRAM))
     Dates: start: 20041013
  10. SCOPOLAMINE HYDROBROMIDE [Suspect]
     Active Substance: SCOPOLAMINE HYDROBROMIDE
     Indication: Product used for unknown indication
     Dosage: 300 UG, QD (300 MICROGRAM, QD (OD))

REACTIONS (4)
  - Death [Fatal]
  - Lower respiratory tract infection [Recovering/Resolving]
  - Neutrophilia [Recovering/Resolving]
  - Leukocytosis [Recovering/Resolving]

NARRATIVE: CASE EVENT DATE: 20240305
